FAERS Safety Report 6908946-7 (Version None)
Quarter: 2010Q3

REPORT INFORMATION
  Report Type: 
  Country: None (occurrence: None)
  Receive Date: 20100805
  Receipt Date: 20100802
  Transmission Date: 20110219
  Serious: Yes (Other)
  Sender: FDA-Public Use
  Company Number: US-KINGPHARMUSA00001-K201000959

PATIENT
  Sex: Female

DRUGS (4)
  1. LEVOXYL [Suspect]
     Dosage: UNK
  2. CHANTIX [Suspect]
     Dosage: UNK
     Dates: start: 20100501, end: 20100701
  3. NEURONTIN [Suspect]
     Dosage: UNK, ^FOR YEARS^
  4. KLONOPIN [Suspect]
     Dosage: UNK

REACTIONS (4)
  - ABDOMINAL PAIN UPPER [None]
  - BACK PAIN [None]
  - MALAISE [None]
  - THROMBOCYTOPENIA [None]
